FAERS Safety Report 16656760 (Version 3)
Quarter: 2019Q3

REPORT INFORMATION
  Report Type: Spontaneous
  Country: US (occurrence: US)
  Receive Date: 20190801
  Receipt Date: 20190919
  Transmission Date: 20191004
  Serious: No
  Sender: FDA-Public Use
  Company Number: US-PFIZER INC-2019330529

PATIENT
  Age: 74 Year
  Sex: Female

DRUGS (8)
  1. OXYCODONE [Suspect]
     Active Substance: OXYCODONE
     Dosage: UNK
  2. PROPOFOL. [Suspect]
     Active Substance: PROPOFOL
     Dosage: UNK
  3. POTASSIUM CLAVULANATE [Suspect]
     Active Substance: CLAVULANATE POTASSIUM
     Dosage: UNK
  4. AUGMENTIN [Suspect]
     Active Substance: AMOXICILLIN\CLAVULANATE POTASSIUM
     Dosage: UNK
  5. HYDROCODONE [Suspect]
     Active Substance: HYDROCODONE
     Dosage: UNK
  6. CELECOXIB. [Suspect]
     Active Substance: CELECOXIB
     Dosage: UNK
  7. ACETAMINOPHEN. [Suspect]
     Active Substance: ACETAMINOPHEN
     Dosage: UNK
  8. AMOXICILLIN. [Suspect]
     Active Substance: AMOXICILLIN
     Dosage: UNK

REACTIONS (1)
  - Drug hypersensitivity [Unknown]
